FAERS Safety Report 4882782-8 (Version None)
Quarter: 2006Q1

REPORT INFORMATION
  Report Type: 
  Country: None (occurrence: None)
  Receive Date: 20060117
  Receipt Date: 20060109
  Transmission Date: 20060701
  Serious: Yes (Death)
  Sender: FDA-Public Use
  Company Number: US-JNJFOC-20051002483

PATIENT
  Sex: Male
  Weight: 82.78 kg

DRUGS (5)
  1. DURAGESIC-100 [Suspect]
     Route: 062
  2. DURAGESIC-100 [Suspect]
     Route: 062
  3. DURAGESIC-100 [Suspect]
     Route: 062
  4. DURAGESIC-100 [Suspect]
     Route: 062
  5. HYDROCODONE BITARTRATE [Concomitant]
     Indication: THERAPEUTIC RESPONSE DECREASED
     Dosage: 7.5/500, ONE EVERY 4 TO 6 HRS AS NEEDED
     Route: 048

REACTIONS (7)
  - APPLICATION SITE ERYTHEMA [None]
  - APPLICATION SITE PRURITUS [None]
  - DEEP VEIN THROMBOSIS [None]
  - INCORRECT DOSE ADMINISTERED [None]
  - NARCOTIC INTOXICATION [None]
  - PULMONARY EMBOLISM [None]
  - THERAPEUTIC RESPONSE DECREASED [None]
